FAERS Safety Report 9752999 (Version 1)
Quarter: 2013Q4

REPORT INFORMATION
  Report Type: Report from Study
  Country: IT (occurrence: IT)
  Receive Date: 20131213
  Receipt Date: 20131213
  Transmission Date: 20140711
  Serious: Yes (Life-Threatening)
  Sender: FDA-Public Use
  Company Number: IT-009507513-1312ITA004810

PATIENT
  Sex: 0

DRUGS (2)
  1. TEMOZOLOMIDE [Suspect]
     Indication: GLIOBLASTOMA
     Dosage: 75 MG/M2/DAY, 5 DAYS A WEEK (EXCLUDING SATURDAY AND SUNDAY)
     Route: 048
     Dates: start: 2004
  2. THERAPEUTIC RADIOPHARMACEUTICAL (UNSPECIFIED) [Concomitant]
     Indication: GLIOBLASTOMA

REACTIONS (1)
  - Toxicity to various agents [Unknown]
